FAERS Safety Report 10310160 (Version 1)
Quarter: 2014Q3

REPORT INFORMATION
  Report Type: Spontaneous
  Country: US (occurrence: US)
  Receive Date: 20140717
  Receipt Date: 20140717
  Transmission Date: 20150326
  Serious: No
  Sender: FDA-Public Use
  Company Number: US-BAYER-2014-107284

PATIENT
  Age: 74 Year
  Sex: Female
  Weight: 59 kg

DRUGS (2)
  1. AMLODIPINE [Concomitant]
     Active Substance: AMLODIPINE BESYLATE
     Indication: HYPERTENSION
     Dosage: 5 MG, QD
     Route: 048
  2. ESTRADIOL HEMIHYDRATE [Suspect]
     Active Substance: ESTRADIOL HEMIHYDRATE
     Dosage: 0.075 MG, QD
     Route: 062
     Dates: start: 2004, end: 201404

REACTIONS (3)
  - Therapy cessation [None]
  - Application site pruritus [Recovered/Resolved]
  - Application site irritation [Not Recovered/Not Resolved]

NARRATIVE: CASE EVENT DATE: 201403
